FAERS Safety Report 22173542 (Version 1)
Quarter: 2023Q2

REPORT INFORMATION
  Report Type: Spontaneous
  Country: IE (occurrence: IE)
  Receive Date: 20230404
  Receipt Date: 20230404
  Transmission Date: 20230721
  Serious: Yes (Life-Threatening, Hospitalization, Other)
  Sender: FDA-Public Use
  Company Number: IE-ASTELLAS-2023US010478

PATIENT
  Age: 59 Year
  Sex: Male

DRUGS (1)
  1. GILTERITINIB [Suspect]
     Active Substance: GILTERITINIB
     Indication: Acute myeloid leukaemia (in remission)
     Dosage: UNK UNK, UNKNOWN FREQ.
     Route: 065
     Dates: end: 20230329

REACTIONS (3)
  - Haemorrhage [Unknown]
  - Mouth haemorrhage [Unknown]
  - Thrombocytopenia [Unknown]
